FAERS Safety Report 7788525-2 (Version None)
Quarter: 2011Q3

REPORT INFORMATION
  Report Type: 
  Country: None (occurrence: None)
  Receive Date: 20110930
  Receipt Date: 20110927
  Transmission Date: 20111222
  Serious: Yes (Death)
  Sender: FDA-Public Use
  Company Number: PHEH2011US04063

PATIENT
  Sex: Female
  Weight: 47.619 kg

DRUGS (2)
  1. EXJADE [Suspect]
     Indication: IRON METABOLISM DISORDER
  2. EXJADE [Suspect]
     Indication: MINERAL METABOLISM DISORDER
     Dosage: 125 MG, BID
     Route: 048
     Dates: start: 20070622

REACTIONS (1)
  - DEATH [None]
